FAERS Safety Report 5095373-3 (Version None)
Quarter: 2006Q3

REPORT INFORMATION
  Report Type: 
  Country: None (occurrence: None)
  Receive Date: 20060901
  Receipt Date: 20060301
  Transmission Date: 20061208
  Serious: Yes (Hospitalization)
  Sender: FDA-Public Use
  Company Number: US-ROCHE-438842

PATIENT
  Age: 21 Year
  Sex: Female
  Weight: 62.6 kg

DRUGS (2)
  1. ACCUTANE [Suspect]
     Route: 048
     Dates: start: 19920930, end: 19930112
  2. ACCUTANE [Suspect]
     Route: 048
     Dates: start: 19950710, end: 19951016

REACTIONS (26)
  - ANAEMIA [None]
  - ANXIETY DISORDER [None]
  - ARTHRITIS [None]
  - ASTHENIA [None]
  - COLITIS [None]
  - COLITIS ULCERATIVE [None]
  - CONSTIPATION [None]
  - CROHN'S DISEASE [None]
  - DEPRESSED MOOD [None]
  - DEPRESSION [None]
  - DISTURBANCE IN ATTENTION [None]
  - FATIGUE [None]
  - FISTULA [None]
  - GASTROENTERITIS [None]
  - HAEMORRHOIDS [None]
  - INFLAMMATORY BOWEL DISEASE [None]
  - INSOMNIA [None]
  - IRRITABLE BOWEL SYNDROME [None]
  - MENTAL STATUS CHANGES [None]
  - PERIRECTAL ABSCESS [None]
  - RECTAL HAEMORRHAGE [None]
  - SLEEP DISORDER [None]
  - SUICIDAL IDEATION [None]
  - VIRAL INFECTION [None]
  - VOMITING [None]
  - WEIGHT INCREASED [None]
